FAERS Safety Report 22593681 (Version 13)
Quarter: 2024Q1

REPORT INFORMATION
  Report Type: Report from Study
  Country: CA (occurrence: CA)
  Receive Date: 20230613
  Receipt Date: 20240105
  Transmission Date: 20240410
  Serious: Yes (Hospitalization)
  Sender: FDA-Public Use
  Company Number: CA-JNJFOC-20220932341

PATIENT
  Age: 15 Year
  Sex: Male

DRUGS (15)
  1. REMICADE [Suspect]
     Active Substance: INFLIXIMAB
     Indication: Hidradenitis
     Dosage: ON 15-SEP-2022, THE PATIENT RECEIVED 21ST INFUSION WITH DOSE 600 MG AND PARTIAL HARVEY-BRADSHAW COMP
     Route: 041
     Dates: start: 20210224
  2. REMICADE [Suspect]
     Active Substance: INFLIXIMAB
     Indication: Crohn^s disease
     Dosage: ON 05-JAN-2023, THE PATIENT RECEIVED 25TH INFLIXIMAB, RECOMBINANT INFUSION AT DOSE OF 800 MG AND PAR
     Route: 041
  3. REMICADE [Suspect]
     Active Substance: INFLIXIMAB
     Dosage: EXPIRY DATE: 30-NOV-2025?EXPIRY DATE: APR-2026
     Route: 041
  4. REMICADE [Suspect]
     Active Substance: INFLIXIMAB
     Route: 041
     Dates: start: 20210224
  5. ERTAPENEM [Suspect]
     Active Substance: ERTAPENEM
     Indication: Product used for unknown indication
     Route: 042
     Dates: end: 20231012
  6. SULFASALAZINE [Concomitant]
     Active Substance: SULFASALAZINE
     Indication: Product used for unknown indication
     Route: 065
  7. SULFASALAZINE [Concomitant]
     Active Substance: SULFASALAZINE
     Dosage: DAILY
     Route: 065
     Dates: start: 202209
  8. SULFASALAZINE [Concomitant]
     Active Substance: SULFASALAZINE
     Dosage: STARTED BACK ON SULFASALAZINE
     Route: 065
  9. METHOTREXATE SODIUM [Concomitant]
     Active Substance: METHOTREXATE SODIUM
     Indication: Product used for unknown indication
     Route: 065
  10. KINERET [Concomitant]
     Active Substance: ANAKINRA
     Indication: Product used for unknown indication
     Dosage: DAILY INJECTIONS
     Route: 065
     Dates: start: 20230818
  11. KINERET [Concomitant]
     Active Substance: ANAKINRA
     Dosage: INCREASED DOSE
     Route: 065
     Dates: start: 2023
  12. ERTAPENEM [Concomitant]
     Active Substance: ERTAPENEM
     Indication: Product used for unknown indication
     Route: 042
     Dates: end: 20231012
  13. IRON [Concomitant]
     Active Substance: IRON
     Indication: Product used for unknown indication
     Route: 065
  14. FOLIC ACID [Concomitant]
     Active Substance: FOLIC ACID
     Indication: Product used for unknown indication
     Route: 065
  15. BENADRYL [Concomitant]
     Active Substance: DIPHENHYDRAMINE HYDROCHLORIDE
     Indication: Premedication
     Route: 065

REACTIONS (27)
  - Hospitalisation [Unknown]
  - Dysarthria [Unknown]
  - Tearfulness [Unknown]
  - Hidradenitis [Recovering/Resolving]
  - Skin lesion inflammation [Recovering/Resolving]
  - Neck mass [Recovering/Resolving]
  - Abnormal faeces [Unknown]
  - General physical health deterioration [Not Recovered/Not Resolved]
  - Tympanic membrane perforation [Unknown]
  - Otorrhoea [Unknown]
  - Inflammation [Unknown]
  - Weight decreased [Recovering/Resolving]
  - Wound [Recovering/Resolving]
  - Wound complication [Recovering/Resolving]
  - Insomnia [Recovering/Resolving]
  - Liver function test increased [Unknown]
  - Haemoglobin decreased [Unknown]
  - Pain [Recovering/Resolving]
  - Pyrexia [Not Recovered/Not Resolved]
  - Constipation [Recovering/Resolving]
  - Abdominal pain [Unknown]
  - Rash erythematous [Unknown]
  - Diarrhoea [Unknown]
  - Infusion related reaction [Unknown]
  - Discharge [Recovering/Resolving]
  - Product use issue [Unknown]
  - Off label use [Unknown]

NARRATIVE: CASE EVENT DATE: 20220101
